FAERS Safety Report 19996112 (Version 1)
Quarter: 2021Q4

REPORT INFORMATION
  Report Type: Report from Study
  Country: IT (occurrence: IT)
  Receive Date: 20211026
  Receipt Date: 20211026
  Transmission Date: 20220303
  Serious: Yes (Congenital Anomaly)
  Sender: FDA-Public Use
  Company Number: IT-HRAPH01-2021001327

PATIENT
  Sex: Male
  Weight: 3.26 kg

DRUGS (2)
  1. ULIPRISTAL ACETATE [Suspect]
     Active Substance: ULIPRISTAL ACETATE
     Route: 064
     Dates: start: 20201228, end: 20201228
  2. Eutirox 75 mg [Concomitant]
     Dosage: 1 DOSAGE FORM OF 75 ?G (ERRONEOUSLY REPORTED AS 75 MG)
     Route: 064

REACTIONS (2)
  - Ear malformation [Not Recovered/Not Resolved]
  - Maternal exposure during pregnancy [Recovered/Resolved]

NARRATIVE: CASE EVENT DATE: 20210101
